FAERS Safety Report 9771821 (Version 1)
Quarter: 2013Q3

REPORT INFORMATION
  Report Type: Spontaneous
  Country: US (occurrence: None)
  Receive Date: 20130920
  Receipt Date: 20130920
  Transmission Date: 20140515
  Serious: Yes (Death)
  Sender: FDA-Public Use
  Company Number: US-SEPTODONT-201301473

PATIENT
  Age: 80 Year
  Sex: Male

DRUGS (2)
  1. CARBOCAINE 3% [Suspect]
     Indication: LOCAL ANAESTHESIA
     Route: 004
     Dates: start: 20130415
  2. BENZOCAINE [Concomitant]

REACTIONS (6)
  - Throat irritation [None]
  - Chest pain [None]
  - Dyspnoea [None]
  - Pallor [None]
  - Respiratory distress [None]
  - Hypertension [None]
